FAERS Safety Report 10017247 (Version 2)
Quarter: 2014Q1

REPORT INFORMATION
  Report Type: Spontaneous
  Country: US (occurrence: US)
  Receive Date: 20140318
  Receipt Date: 20140318
  Transmission Date: 20141002
  Serious: Yes (Disabling)
  Sender: FDA-Public Use
  Company Number: US-GE HEALTHCARE MEDICAL DIAGNOSTICS-OSCN-PR-0806S-0414

PATIENT
  Age: 53 Year
  Sex: Female

DRUGS (4)
  1. OMNISCAN [Suspect]
     Indication: CONVULSION
     Route: 042
     Dates: start: 19990109, end: 19990109
  2. OMNISCAN [Suspect]
     Indication: OSTEOMYELITIS
     Route: 042
     Dates: start: 20021218, end: 20021218
  3. OMNISCAN [Suspect]
     Indication: TRANSPLANT EVALUATION
     Route: 042
     Dates: start: 20070315, end: 20070315
  4. MAGNEVIST [Suspect]
     Indication: CONVULSION
     Route: 042
     Dates: start: 19990109, end: 19990109

REACTIONS (1)
  - Nephrogenic systemic fibrosis [Not Recovered/Not Resolved]
